FAERS Safety Report 16874528 (Version 2)
Quarter: 2020Q3

REPORT INFORMATION
  Report Type: Spontaneous
  Country: US (occurrence: US)
  Receive Date: 20191001
  Receipt Date: 20200717
  Transmission Date: 20201102
  Serious: Yes (Hospitalization, Other)
  Sender: FDA-Public Use
  Company Number: US-ASTRAZENECA-2019SF36585

PATIENT
  Age: 9238 Day
  Sex: Female
  Weight: 124.7 kg

DRUGS (34)
  1. DEXTROSE. [Concomitant]
     Active Substance: DEXTROSE
  2. ZOFRAN [Concomitant]
     Active Substance: ONDANSETRON HYDROCHLORIDE
  3. ACETAMINOPHEN. [Concomitant]
     Active Substance: ACETAMINOPHEN
     Dates: start: 20170925
  4. ZOSYN [Concomitant]
     Active Substance: PIPERACILLIN SODIUM\TAZOBACTAM SODIUM
  5. HEPARIN [Concomitant]
     Active Substance: HEPARIN SODIUM
  6. CLINDAMYCIN. [Concomitant]
     Active Substance: CLINDAMYCIN
  7. POLYETHYLENE GLYCOL [Concomitant]
     Active Substance: POLYETHYLENE GLYCOLS
     Dates: start: 20170926
  8. DIPHENHYDRAMINE. [Concomitant]
     Active Substance: DIPHENHYDRAMINE
  9. GLYCOPYRROLATE. [Concomitant]
     Active Substance: GLYCOPYRROLATE
  10. VANCOMYCIN [Concomitant]
     Active Substance: VANCOMYCIN
     Dates: start: 20170928
  11. OXYCODONE [Concomitant]
     Active Substance: OXYCODONE
  12. NALOXONE [Concomitant]
     Active Substance: NALOXONE
  13. MEPERIDINE [Concomitant]
     Active Substance: MEPERIDINE
     Dates: start: 20170925
  14. TAZOBACTAM [Concomitant]
     Active Substance: TAZOBACTAM
  15. MIDAZOLAM. [Concomitant]
     Active Substance: MIDAZOLAM
  16. SUCCINYLCHOLINE [Concomitant]
     Active Substance: SUCCINYLCHOLINE
     Dates: start: 20170928
  17. AMPICILLIN [Concomitant]
     Active Substance: AMPICILLIN
     Dates: start: 20170928
  18. PROMETHAZINE [Concomitant]
     Active Substance: PROMETHAZINE HYDROCHLORIDE
     Dates: start: 20170925
  19. ATORVASTATIN [Concomitant]
     Active Substance: ATORVASTATIN
  20. LISINOPRIL. [Concomitant]
     Active Substance: LISINOPRIL
  21. FLUCONAZOLE. [Concomitant]
     Active Substance: FLUCONAZOLE
  22. FARXIGA [Suspect]
     Active Substance: DAPAGLIFLOZIN PROPANEDIOL
     Indication: TYPE 2 DIABETES MELLITUS
     Route: 048
  23. ASCORBIC ACID. [Concomitant]
     Active Substance: ASCORBIC ACID
  24. ONDANSETRON [Concomitant]
     Active Substance: ONDANSETRON
  25. ALBUMIN [Concomitant]
     Active Substance: ALBUMIN HUMAN
  26. PROPOFOL. [Concomitant]
     Active Substance: PROPOFOL
  27. ATROPINE. [Concomitant]
     Active Substance: ATROPINE
     Dates: start: 20170925
  28. METOCLOPRAMIDE. [Concomitant]
     Active Substance: METOCLOPRAMIDE
     Dates: start: 20170925
  29. FARXIGA [Suspect]
     Active Substance: DAPAGLIFLOZIN PROPANEDIOL
     Indication: TYPE 2 DIABETES MELLITUS
     Route: 048
     Dates: start: 20170824
  30. SODIUM CHLORIDE. [Concomitant]
     Active Substance: SODIUM CHLORIDE
     Dates: start: 20170925
  31. HYDROMORPHONE [Concomitant]
     Active Substance: HYDROMORPHONE
  32. ROCURONIUM [Concomitant]
     Active Substance: ROCURONIUM BROMIDE
  33. FENTANYL. [Concomitant]
     Active Substance: FENTANYL
     Dates: start: 20170925
  34. METFORMIN [Concomitant]
     Active Substance: METFORMIN HYDROCHLORIDE

REACTIONS (4)
  - Sepsis [Unknown]
  - Necrotising soft tissue infection [Unknown]
  - Necrotising fasciitis [Unknown]
  - Fournier^s gangrene [Unknown]

NARRATIVE: CASE EVENT DATE: 20170920
